FAERS Safety Report 25843607 (Version 1)
Quarter: 2025Q3

REPORT INFORMATION
  Report Type: Spontaneous
  Country: US (occurrence: US)
  Receive Date: 20250924
  Receipt Date: 20250924
  Transmission Date: 20251020
  Serious: No
  Sender: INSUD PHARMA
  Company Number: US-INSUD PHARMA-2509US07464

PATIENT

DRUGS (2)
  1. ETHINYL ESTRADIOL\LEVONORGESTREL [Suspect]
     Active Substance: ETHINYL ESTRADIOL\LEVONORGESTREL
     Indication: Dysmenorrhoea
     Route: 048
  2. ETHINYL ESTRADIOL\LEVONORGESTREL [Suspect]
     Active Substance: ETHINYL ESTRADIOL\LEVONORGESTREL
     Indication: Premenstrual dysphoric disorder

REACTIONS (6)
  - Malaise [Recovered/Resolved]
  - Vomiting [Recovered/Resolved]
  - Nausea [Recovered/Resolved]
  - Drug intolerance [Recovered/Resolved]
  - Reaction to excipient [Recovered/Resolved]
  - Product use in unapproved indication [Unknown]
